FAERS Safety Report 5367988-6 (Version None)
Quarter: 2007Q2

REPORT INFORMATION
  Report Type: 
  Country: None (occurrence: None)
  Receive Date: 20070622
  Receipt Date: 20070611
  Transmission Date: 20071010
  Serious: Yes (Hospitalization)
  Sender: FDA-Public Use
  Company Number: JP-PFIZER INC-2007046001

PATIENT
  Age: 85 Year
  Sex: Female

DRUGS (4)
  1. ALDACTONE [Suspect]
     Indication: ILL-DEFINED DISORDER
     Dosage: DAILY DOSE:25MG
     Route: 048
  2. ALFAROL [Suspect]
     Indication: ANAEMIA
     Dosage: TEXT:UNKNOWN
     Route: 048
  3. AMLODIN [Concomitant]
     Dosage: DAILY DOSE:5MG
     Route: 048
  4. TAKEPRON [Concomitant]
     Dosage: DAILY DOSE:15MG
     Route: 048

REACTIONS (2)
  - ANAEMIA [None]
  - BLOOD CALCIUM INCREASED [None]
